FAERS Safety Report 4340313-5 (Version None)
Quarter: 2004Q2

REPORT INFORMATION
  Report Type: 
  Country: None (occurrence: None)
  Receive Date: 20040412
  Receipt Date: 20040330
  Transmission Date: 20050107
  Serious: Yes (Other)
  Sender: FDA-Public Use
  Company Number: 2004015559

PATIENT
  Age: 33 Year
  Sex: Female
  Weight: 50 kg

DRUGS (2)
  1. ZELDOX [Suspect]
     Indication: SCHIZOPHRENIA
     Dosage: 80 MG (BID),
     Dates: start: 20020517, end: 20040209
  2. CONTRACEPTIVE, (CONTRACEPTIVE,) [Concomitant]

REACTIONS (2)
  - PSORIASIS [None]
  - SKIN NODULE [None]
